FAERS Safety Report 14970588 (Version 1)
Quarter: 2018Q2

REPORT INFORMATION
  Report Type: Report from Study
  Country: BR (occurrence: BR)
  Receive Date: 20180604
  Receipt Date: 20180604
  Transmission Date: 20180711
  Serious: Yes (Hospitalization, Other)
  Sender: FDA-Public Use
  Company Number: BR-UCBSA-2018023498

PATIENT
  Age: 9 Year
  Sex: Male
  Weight: 52 kg

DRUGS (2)
  1. LEVETIRACETAM. [Suspect]
     Active Substance: LEVETIRACETAM
     Indication: EPILEPSY
     Dosage: 3 ML, 2X/DAY (BID)
     Route: 048
     Dates: start: 20180502, end: 20180509
  2. KEPPRA [Suspect]
     Active Substance: LEVETIRACETAM
     Indication: EPILEPSY
     Dosage: 500 MG, 3X/DAY (TID)
     Route: 048
     Dates: start: 20180510

REACTIONS (3)
  - Petit mal epilepsy [Recovered/Resolved]
  - Off label use [Unknown]
  - Seizure [Recovered/Resolved]

NARRATIVE: CASE EVENT DATE: 20180502
